FAERS Safety Report 9310704 (Version 2)
Quarter: 2013Q3

REPORT INFORMATION
  Report Type: Report from Study
  Country: IT (occurrence: IT)
  Receive Date: 20130527
  Receipt Date: 20130809
  Transmission Date: 20140515
  Serious: Yes (Death, Hospitalization)
  Sender: FDA-Public Use
  Company Number: IT-INCYTE CORPORATION-2013IN000770

PATIENT
  Age: 84 Year
  Sex: Male
  Weight: 70 kg

DRUGS (4)
  1. INC424 [Suspect]
     Indication: MYELOFIBROSIS
     Dosage: 5 MG, QD
     Route: 048
     Dates: start: 20120319, end: 20130405
  2. PROSCAR [Concomitant]
     Dosage: UNK
  3. ESOPRAL [Concomitant]
     Dosage: UNK
  4. EXJADE [Concomitant]
     Dosage: UNK
     Dates: start: 20130320

REACTIONS (3)
  - Renal failure acute [Fatal]
  - Pleural effusion [Fatal]
  - Pericardial effusion [Fatal]
